FAERS Safety Report 6793637-6 (Version None)
Quarter: 2010Q2

REPORT INFORMATION
  Report Type: 
  Country: None (occurrence: None)
  Receive Date: 20100624
  Receipt Date: 20090316
  Transmission Date: 20101027
  Serious: Yes (Life-Threatening, Other)
  Sender: FDA-Public Use
  Company Number: US-PFIZER INC-2008099746

PATIENT
  Sex: Female
  Weight: 16.78 kg

DRUGS (4)
  1. GEODON [Suspect]
     Dosage: 20 MG, 2X/DAY
     Route: 048
     Dates: end: 20081101
  2. RISPERDAL [Suspect]
     Dosage: 0.5 MG, 1X/DAY
     Route: 048
     Dates: end: 20081101
  3. CLONIDINE [Concomitant]
  4. COGENTIN [Concomitant]

REACTIONS (2)
  - DYSPHAGIA [None]
  - SWOLLEN TONGUE [None]
